FAERS Safety Report 13044331 (Version 1)
Quarter: 2016Q4

REPORT INFORMATION
  Report Type: Spontaneous
  Country: US (occurrence: US)
  Receive Date: 20161220
  Receipt Date: 20161220
  Transmission Date: 20170207
  Serious: No
  Sender: FDA-Public Use
  Company Number: None

PATIENT
  Age: 50 Year
  Sex: Female

DRUGS (1)
  1. IMIPENEM/CILASTATIN 500MG FRESENIUS [Suspect]
     Active Substance: CILASTATIN SODIUM\IMIPENEM
     Indication: BREAST INFLAMMATION
     Route: 042
     Dates: start: 20161012, end: 20161017

REACTIONS (3)
  - Urticaria [None]
  - Adverse reaction [None]
  - Pruritus [None]

NARRATIVE: CASE EVENT DATE: 20161017
